FAERS Safety Report 4753532-0 (Version None)
Quarter: 2005Q3

REPORT INFORMATION
  Report Type: 
  Country: None (occurrence: None)
  Receive Date: 20050826
  Receipt Date: 20050728
  Transmission Date: 20060218
  Serious: Yes (Other)
  Sender: FDA-Public Use
  Company Number: PHEH2005US08492

PATIENT
  Age: 60 Year
  Sex: Male
  Weight: 98 kg

DRUGS (1)
  1. LOTREL [Suspect]
     Indication: HYPERTENSION
     Dosage: 5/10MG, QD
     Route: 048
     Dates: start: 20050424, end: 20050515

REACTIONS (11)
  - ABDOMINAL DISCOMFORT [None]
  - CHILLS [None]
  - CONDITION AGGRAVATED [None]
  - DIZZINESS [None]
  - EYE BURNS [None]
  - FEELING ABNORMAL [None]
  - GOUT [None]
  - INSOMNIA [None]
  - JOINT SWELLING [None]
  - MONOPLEGIA [None]
  - PYREXIA [None]
